FAERS Safety Report 24646717 (Version 2)
Quarter: 2024Q4

REPORT INFORMATION
  Report Type: Report from Study
  Country: CA (occurrence: CA)
  Receive Date: 20241121
  Receipt Date: 20241217
  Transmission Date: 20250114
  Serious: Yes (Other)
  Sender: JOHNSON AND JOHNSON
  Company Number: CA-JNJFOC-20240679095

PATIENT
  Age: 77 Year
  Sex: Male

DRUGS (2)
  1. TREMFYA [Suspect]
     Active Substance: GUSELKUMAB
     Indication: Psoriasis
     Route: 058
     Dates: start: 20191209
  2. TREMFYA [Suspect]
     Active Substance: GUSELKUMAB
     Dosage: LAST TREMFYA DOSE WAS ON 16-MAY-2024
     Route: 058
     Dates: start: 20231209

REACTIONS (3)
  - Knee operation [Recovering/Resolving]
  - Pneumonia [Unknown]
  - Postoperative wound infection [Not Recovered/Not Resolved]

NARRATIVE: CASE EVENT DATE: 20240810
